FAERS Safety Report 10242120 (Version 1)
Quarter: 2014Q1

REPORT INFORMATION
  Report Type: Spontaneous
  Country: US (occurrence: None)
  Receive Date: 20140306
  Receipt Date: 20140306
  Transmission Date: 20141002
  Serious: Yes (Hospitalization)
  Sender: FDA-Public Use
  Company Number: 163-21880-13051909

PATIENT
  Age: 95 Year
  Sex: Male

DRUGS (9)
  1. REVLIMID (LENALIDOMIDE) (5 MILLIGRAM, CAPSULES) [Suspect]
     Indication: PLASMA CELL MYELOMA
     Route: 048
     Dates: start: 201206
  2. DIGOXIN (DIGOXIN) [Concomitant]
  3. LASIX (FUROSEMIDE) [Concomitant]
  4. SIMVASTATIN (SIMVASTATIN) [Concomitant]
  5. TRAVATAN (TRAVOPROST) [Concomitant]
  6. COSOPT (COSOPT) [Concomitant]
  7. PLAVIX (CLOPIDOGREL SULFATE) [Concomitant]
  8. BABY ASPIRIN (ACETYLALICYLIC ACID) [Concomitant]
  9. METOPROLOL (METOPROLOL) [Concomitant]

REACTIONS (2)
  - Anaemia [None]
  - Asthenia [None]
